FAERS Safety Report 6534276-1 (Version None)
Quarter: 2010Q1

REPORT INFORMATION
  Report Type: 
  Country: None (occurrence: None)
  Receive Date: 20100112
  Receipt Date: 20100107
  Transmission Date: 20100710
  Serious: Yes (Other)
  Sender: FDA-Public Use
  Company Number: DE-AMGEN-US385039

PATIENT
  Age: 72 Year
  Sex: Female

DRUGS (2)
  1. ENBREL [Suspect]
     Indication: RHEUMATOID ARTHRITIS
     Route: 058
     Dates: start: 20091207
  2. ENBREL [Suspect]
     Route: 058
     Dates: start: 20091201

REACTIONS (7)
  - APHONIA [None]
  - ARTHRALGIA [None]
  - DIZZINESS [None]
  - INJECTION SITE ERYTHEMA [None]
  - PALPITATIONS [None]
  - SYNCOPE [None]
  - VERTIGO [None]
